FAERS Safety Report 7415160-8 (Version None)
Quarter: 2011Q2

REPORT INFORMATION
  Report Type: 
  Country: None (occurrence: None)
  Receive Date: 20110414
  Receipt Date: 20110404
  Transmission Date: 20111010
  Serious: Yes (Hospitalization, Other)
  Sender: FDA-Public Use
  Company Number: PHEH2006US07282

PATIENT
  Sex: Female

DRUGS (40)
  1. DALMANE [Concomitant]
  2. CLEOCIN [Concomitant]
  3. VERAPAMIL [Concomitant]
  4. PREMARIN [Concomitant]
  5. VELCADE [Concomitant]
  6. ASPIRIN [Concomitant]
  7. ATENOLOL [Concomitant]
  8. ZOFRAN [Concomitant]
  9. LEVOXYL [Concomitant]
  10. DECADRON [Concomitant]
  11. ATIVAN [Concomitant]
  12. PRILOSEC [Concomitant]
  13. LIPITOR [Concomitant]
  14. MACROBID [Concomitant]
  15. NORCO [Concomitant]
  16. MESTINON [Concomitant]
  17. DEXAMETHASONE [Concomitant]
  18. PREMARIN [Concomitant]
  19. NORCO [Concomitant]
  20. GABAPENTIN [Concomitant]
  21. AMIODARONE [Concomitant]
  22. ASPIRIN [Concomitant]
  23. RESTASIS [Concomitant]
  24. OXYCODONE [Concomitant]
  25. AREDIA [Suspect]
     Dosage: UNK
     Dates: end: 20020326
  26. TAGAMET [Concomitant]
  27. VERAPAMIL [Concomitant]
  28. LIPITOR [Concomitant]
  29. SYSTANE (PROPYLENE GLYCOL/MACROGOL) [Concomitant]
  30. ALCOHOL [Concomitant]
  31. LORAZEPAM [Concomitant]
  32. VALTREX [Concomitant]
  33. FLUDROCORTISONE [Concomitant]
  34. ZOMETA [Suspect]
     Dosage: UNK
     Dates: end: 20051201
  35. AMBIEN [Concomitant]
  36. CALCITONIN [Concomitant]
  37. CLINDAMYCIN [Concomitant]
  38. LYRICA [Concomitant]
  39. PRILOSEC [Concomitant]
  40. OMEPRAZOLE [Concomitant]

REACTIONS (90)
  - GENERAL PHYSICAL HEALTH DETERIORATION [None]
  - CELLULITIS [None]
  - DIZZINESS [None]
  - ASTHENIA [None]
  - RENAL FAILURE CHRONIC [None]
  - CARDIOMYOPATHY [None]
  - HERPES ZOSTER [None]
  - DERMATITIS CONTACT [None]
  - PAIN [None]
  - DECREASED INTEREST [None]
  - BONE DISORDER [None]
  - CATARACT [None]
  - GLARE [None]
  - VENTRICULAR HYPOKINESIA [None]
  - PALPITATIONS [None]
  - CARDIAC FAILURE CONGESTIVE [None]
  - BACK PAIN [None]
  - SYNCOPE [None]
  - INGROWING NAIL [None]
  - ARRHYTHMIA SUPRAVENTRICULAR [None]
  - DECREASED APPETITE [None]
  - PALMAR-PLANTAR ERYTHRODYSAESTHESIA SYNDROME [None]
  - PERICARDIAL EFFUSION [None]
  - SPINAL OSTEOARTHRITIS [None]
  - FACIAL PAIN [None]
  - HALLUCINATION [None]
  - BURSITIS [None]
  - NAUSEA [None]
  - VENTRICULAR EXTRASYSTOLES [None]
  - ROAD TRAFFIC ACCIDENT [None]
  - MENTAL STATUS CHANGES [None]
  - INSOMNIA [None]
  - HYPOKALAEMIA [None]
  - BLOOD PRESSURE FLUCTUATION [None]
  - RHONCHI [None]
  - EAR DISORDER [None]
  - OSTEOMYELITIS [None]
  - MUSCULOSKELETAL PAIN [None]
  - BRONCHITIS [None]
  - NEURALGIA [None]
  - NEUTROPENIA [None]
  - PYREXIA [None]
  - VISUAL ACUITY REDUCED [None]
  - COLONIC POLYP [None]
  - SPINAL COMPRESSION FRACTURE [None]
  - DEHYDRATION [None]
  - JOINT DISLOCATION [None]
  - GRIEF REACTION [None]
  - GASTROOESOPHAGEAL REFLUX DISEASE [None]
  - VOMITING [None]
  - HIATUS HERNIA [None]
  - LEFT VENTRICULAR HYPERTROPHY [None]
  - TENDONITIS [None]
  - ANAEMIA OF CHRONIC DISEASE [None]
  - SUPRAVENTRICULAR TACHYCARDIA [None]
  - IRON DEFICIENCY ANAEMIA [None]
  - VERTIGO [None]
  - CEREBRAL SMALL VESSEL ISCHAEMIC DISEASE [None]
  - ANXIETY [None]
  - MACROCYTOSIS [None]
  - HYPOTENSION [None]
  - SUPRAVENTRICULAR EXTRASYSTOLES [None]
  - DIVERTICULUM [None]
  - RENAL FAILURE ACUTE [None]
  - BLOOD UREA INCREASED [None]
  - EJECTION FRACTION DECREASED [None]
  - INFLUENZA LIKE ILLNESS [None]
  - DIARRHOEA [None]
  - RECTAL HAEMORRHAGE [None]
  - DEPRESSION [None]
  - HYPOAESTHESIA [None]
  - OSTEONECROSIS OF JAW [None]
  - SWELLING [None]
  - ABSCESS [None]
  - CONFUSIONAL STATE [None]
  - DELIRIUM [None]
  - DYSPHAGIA [None]
  - URINARY TRACT INFECTION [None]
  - BONE PAIN [None]
  - HYPERCALCAEMIA [None]
  - CHEST PAIN [None]
  - BLOOD CREATININE INCREASED [None]
  - LETHARGY [None]
  - LEFT ATRIAL DILATATION [None]
  - MITRAL VALVE INCOMPETENCE [None]
  - CONSTIPATION [None]
  - CIRCULATORY COLLAPSE [None]
  - NEUROPATHY PERIPHERAL [None]
  - PAIN IN EXTREMITY [None]
  - EYE INFECTION [None]
